FAERS Safety Report 7432025 (Version 3)
Quarter: 2012Q4

REPORT INFORMATION
  Report Type: 
  Country: US (occurrence: US)
  Receive Date: 20100624
  Receipt Date: 20121003
  Transmission Date: 20130627
  Serious: Yes (Hospitalization)
  Sender: FDA-Public Use
  Company Number: US-BAYER-201025633NA

PATIENT
  Age: 20 Year
  Sex: Female
  Weight: 89.8 kg

DRUGS (5)
  1. YAZ [Suspect]
     Indication: PRODUCT USED FOR UNKNOWN INDICATION
     Route: 048
     Dates: start: 200907, end: 200910
  2. YAZ [Suspect]
     Indication: PRODUCT USED FOR UNKNOWN INDICATION
     Dosage: UNK
     Dates: start: 200903, end: 200910
  3. ALBUTEROL [Concomitant]
  4. MIDOL LIQUID GELS [Concomitant]
     Indication: ANALGESIC THERAPY
  5. NSAID^S [Concomitant]
     Dosage: UNK
     Dates: start: 2004

REACTIONS (7)
  - Ischaemic cerebral infarction [Unknown]
  - Visual impairment [Unknown]
  - Hypoaesthesia [Unknown]
  - Nausea [Unknown]
  - Headache [Unknown]
  - Diplopia [Unknown]
  - Vision blurred [Unknown]
